FAERS Safety Report 5320859-3 (Version None)
Quarter: 2007Q2

REPORT INFORMATION
  Report Type: 
  Country: None (occurrence: None)
  Receive Date: 20070504
  Receipt Date: 20070418
  Transmission Date: 20071010
  Serious: Yes (Life-Threatening, Hospitalization)
  Sender: FDA-Public Use
  Company Number: DSA_29794_2007

PATIENT
  Sex: Male

DRUGS (1)
  1. TAVOR/00273201/(TAVOR) 1 MG [Suspect]
     Dosage: (50 MG 1X ORAL)
     Route: 048
     Dates: start: 20070417, end: 20070417

REACTIONS (4)
  - INTENTIONAL OVERDOSE [None]
  - SOMNOLENCE [None]
  - SUICIDE ATTEMPT [None]
  - VENTRICULAR EXTRASYSTOLES [None]
